FAERS Safety Report 7139224-1 (Version None)
Quarter: 2010Q4

REPORT INFORMATION
  Report Type: 
  Country: None (occurrence: None)
  Receive Date: 20101206
  Receipt Date: 20101123
  Transmission Date: 20110411
  Serious: Yes (Other)
  Sender: FDA-Public Use
  Company Number: US-ELI_LILLY_AND_COMPANY-US201009003954

PATIENT
  Sex: Female
  Weight: 73.016 kg

DRUGS (4)
  1. FORTEO [Suspect]
     Indication: OSTEOPOROSIS
     Dosage: UNK, UNKNOWN
     Route: 065
     Dates: start: 20100614, end: 20100901
  2. METHOTREXATE [Concomitant]
     Indication: RHEUMATOID ARTHRITIS
     Dosage: 25 MG/ML 0.5 ML,UNK
     Route: 030
  3. PLAQUINOL [Concomitant]
     Indication: RHEUMATOID ARTHRITIS
     Dosage: 200 MG, 2/D
     Route: 048
  4. FOLIC ACID [Concomitant]
     Dosage: 1 MG 3 TAB, 4/D
     Route: 065

REACTIONS (1)
  - ANKLE FRACTURE [None]
